FAERS Safety Report 10926732 (Version 1)
Quarter: 2015Q1

REPORT INFORMATION
  Report Type: Spontaneous
  Country: GB (occurrence: GB)
  Receive Date: 20150318
  Receipt Date: 20150318
  Transmission Date: 20150721
  Serious: Yes (Other)
  Sender: FDA-Public Use
  Company Number: PHHY2015GB028584

PATIENT
  Age: 52 Year
  Sex: Female
  Weight: 96 kg

DRUGS (2)
  1. IRBESARTAN. [Concomitant]
     Active Substance: IRBESARTAN
     Indication: HYPERTENSION
     Dosage: 2.5 MG, (LOWEST DOSE)
     Route: 065
  2. DOXAZOSIN [Suspect]
     Active Substance: DOXAZOSIN\DOXAZOSIN MESYLATE
     Indication: HYPERTENSION
     Dosage: LOWEST DOSE
     Route: 048

REACTIONS (3)
  - Nasal congestion [Unknown]
  - Pollakiuria [Unknown]
  - Dyspnoea [Unknown]
